FAERS Safety Report 10467983 (Version 3)
Quarter: 2015Q2

REPORT INFORMATION
  Report Type: Spontaneous
  Country: US (occurrence: US)
  Receive Date: 20140922
  Receipt Date: 20150406
  Transmission Date: 20150821
  Serious: Yes (Death, Hospitalization, Other)
  Sender: FDA-Public Use
  Company Number: US-MERCK-1409USA009898

PATIENT
  Sex: Male
  Weight: 79.32 kg

DRUGS (2)
  1. JANUVIA [Suspect]
     Active Substance: SITAGLIPTIN PHOSPHATE
     Indication: TYPE 2 DIABETES MELLITUS
     Dosage: 50 MG, QD
     Route: 048
     Dates: start: 20080520, end: 20111128
  2. JANUMET [Suspect]
     Active Substance: METFORMIN HYDROCHLORIDE\SITAGLIPTIN PHOSPHATE
     Indication: TYPE 2 DIABETES MELLITUS
     Dosage: 50/500 MG, BID
     Route: 048
     Dates: start: 200805

REACTIONS (31)
  - Chronic kidney disease [Not Recovered/Not Resolved]
  - Chronic hepatitis C [Not Recovered/Not Resolved]
  - Hepatic cirrhosis [Unknown]
  - Accelerated hypertension [Unknown]
  - Cardiovascular disorder [Unknown]
  - Renal cyst [Unknown]
  - Gastrooesophageal reflux disease [Unknown]
  - Metastases to bone [Unknown]
  - Lymphadenopathy [Unknown]
  - Depression [Unknown]
  - Sepsis [Unknown]
  - Organic erectile dysfunction [Unknown]
  - Hypotension [Unknown]
  - Pruritus generalised [Unknown]
  - Toxic encephalopathy [Unknown]
  - Cholangitis [Unknown]
  - Hepatic failure [Fatal]
  - Bacteraemia [Unknown]
  - Essential hypertension [Unknown]
  - Pancreatitis acute [Unknown]
  - Hypokalaemia [Unknown]
  - Left ventricular hypertrophy [Unknown]
  - Diastolic dysfunction [Unknown]
  - Pulmonary haematoma [Unknown]
  - Vitamin D deficiency [Unknown]
  - Vision blurred [Unknown]
  - Gastric ulcer [Unknown]
  - Pancreatic carcinoma metastatic [Fatal]
  - Metastases to liver [Unknown]
  - Hyperlipidaemia [Unknown]
  - Hypercalcaemia [Unknown]

NARRATIVE: CASE EVENT DATE: 200811
